FAERS Safety Report 4283943-1 (Version None)
Quarter: 2004Q1

REPORT INFORMATION
  Report Type: 
  Country: None (occurrence: None)
  Receive Date: 20040115
  Receipt Date: 20030107
  Transmission Date: 20041129
  Serious: Yes (Hospitalization)
  Sender: FDA-Public Use
  Company Number: NSADSS2003000860

PATIENT
  Age: 73 Year
  Sex: Female
  Weight: 60.3284 kg

DRUGS (1)
  1. DOXIL [Suspect]
     Indication: OVARIAN CANCER
     Dosage: 80 MG 1 IN 1 MONTH INTRAVENOUS DRIP
     Route: 041
     Dates: start: 20020901, end: 20021121

REACTIONS (7)
  - ANAEMIA [None]
  - DYSPNOEA [None]
  - ERYTHEMA [None]
  - OEDEMA [None]
  - PAIN [None]
  - PRURITUS [None]
  - SKIN DISCOLOURATION [None]
